FAERS Safety Report 16811155 (Version 2)
Quarter: 2020Q4

REPORT INFORMATION
  Report Type: Spontaneous
  Country: DE (occurrence: DE)
  Receive Date: 20190916
  Receipt Date: 20201030
  Transmission Date: 20210113
  Serious: Yes (Hospitalization, Other)
  Sender: FDA-Public Use
  Company Number: DE-JNJFOC-20190740111

PATIENT
  Age: 51 Year
  Sex: Female
  Weight: 47 kg

DRUGS (5)
  1. BUDESONIDE. [Concomitant]
     Active Substance: BUDESONIDE
     Dosage: MORNING
     Route: 065
  2. METOPROLOL. [Concomitant]
     Active Substance: METOPROLOL
     Dosage: MORNING
     Route: 065
  3. FLUNARIZINE [Concomitant]
     Active Substance: FLUNARIZINE
     Dosage: EVENING
     Route: 065
  4. STELARA [Suspect]
     Active Substance: USTEKINUMAB
     Indication: CROHN^S DISEASE
     Route: 058
     Dates: start: 20190325
  5. L-THYROXIN [Concomitant]
     Active Substance: LEVOTHYROXINE SODIUM
     Dosage: MORNING
     Route: 065

REACTIONS (6)
  - Cholelithiasis [Unknown]
  - Abdominal pain [Recovered/Resolved]
  - Infusion related reaction [Recovered/Resolved]
  - Haematochezia [Recovered/Resolved]
  - Urinary retention [Unknown]
  - Back pain [Recovered/Resolved]

NARRATIVE: CASE EVENT DATE: 20190325
